FAERS Safety Report 18198163 (Version 1)
Quarter: 2020Q3

REPORT INFORMATION
  Report Type: Spontaneous
  Country: IT (occurrence: IT)
  Receive Date: 20200826
  Receipt Date: 20200826
  Transmission Date: 20201103
  Serious: Yes (Hospitalization, Other)
  Sender: FDA-Public Use
  Company Number: IT-PFIZER INC-2020328973

PATIENT
  Age: 52 Year
  Sex: Female

DRUGS (3)
  1. HALCION [Suspect]
     Active Substance: TRIAZOLAM
     Dosage: 2.5MG (10 DF) TOTAL
     Route: 048
     Dates: start: 20200804, end: 20200804
  2. EFFEXOR XR [Suspect]
     Active Substance: VENLAFAXINE HYDROCHLORIDE
     Dosage: UNK
     Route: 048
     Dates: start: 20200804
  3. SEROQUEL [Suspect]
     Active Substance: QUETIAPINE FUMARATE
     Dosage: 250 MG (10 DF) TOTAL
     Route: 048
     Dates: start: 20200804, end: 20200804

REACTIONS (4)
  - Oxygen saturation decreased [Recovering/Resolving]
  - Somnolence [Recovering/Resolving]
  - Intentional overdose [Recovering/Resolving]
  - Intentional self-injury [Recovering/Resolving]

NARRATIVE: CASE EVENT DATE: 20200804
